FAERS Safety Report 9855804 (Version 1)
Quarter: 2014Q1

REPORT INFORMATION
  Report Type: Report from Study
  Country: US (occurrence: US)
  Receive Date: 20140130
  Receipt Date: 20140130
  Transmission Date: 20141002
  Serious: Yes (Other)
  Sender: FDA-Public Use
  Company Number: US-ROCHE-1322244

PATIENT
  Sex: Male

DRUGS (32)
  1. AVASTIN [Suspect]
     Indication: COLON CANCER
     Route: 042
     Dates: start: 20130304
  2. AVASTIN [Suspect]
     Indication: METASTASES TO LUNG
     Route: 042
     Dates: start: 20130312
  3. AVASTIN [Suspect]
     Indication: RETROPERITONEAL CANCER
     Route: 042
     Dates: start: 20130318
  4. AVASTIN [Suspect]
     Indication: METASTASES TO PERITONEUM
     Route: 042
     Dates: start: 20130218
  5. AVASTIN [Suspect]
     Indication: METASTASES TO LIVER
     Route: 042
     Dates: start: 20121217
  6. AVASTIN [Suspect]
     Route: 042
     Dates: start: 20121001
  7. AVASTIN [Suspect]
     Route: 042
     Dates: start: 20121015
  8. AVASTIN [Suspect]
     Route: 042
     Dates: start: 20120917
  9. AVASTIN [Suspect]
     Route: 042
     Dates: start: 20130123
  10. AVASTIN [Suspect]
     Route: 042
     Dates: start: 20130102
  11. AVASTIN [Suspect]
     Route: 042
     Dates: start: 20121029
  12. AVASTIN [Suspect]
     Route: 042
     Dates: start: 20121112
  13. AVASTIN [Suspect]
     Route: 042
     Dates: start: 20130104
  14. AVASTIN [Suspect]
     Route: 042
     Dates: start: 20130415
  15. AVASTIN [Suspect]
     Route: 042
     Dates: start: 20130429
  16. DEXAMETHASONE SODIUM PHOSPHATE [Concomitant]
     Dosage: ALSO RECEIVED ON 17/SEP/2012, 01/OCT/2012, 15/OCT/2012, 29/OCT/2012, 12/NOV/2012, 17/DEC/2012, 02/JA
     Route: 042
     Dates: start: 20130812, end: 20130812
  17. DEXAMETHASONE SODIUM PHOSPHATE [Concomitant]
     Route: 042
     Dates: start: 20130826, end: 20130826
  18. PALONOSETRON HYDROCHLORIDE [Concomitant]
     Dosage: ALSO RECEIVED ON 17/SEP/2012, 01/OCT/2012, 15/OCT/2012, 29/OCT/2012, 12/NOV/2012, 17/DEC/2012, 02/JA
     Route: 042
     Dates: start: 20130812, end: 20130812
  19. PALONOSETRON HYDROCHLORIDE [Concomitant]
     Route: 042
     Dates: start: 20130826, end: 20130826
  20. LEUCOVORIN CALCIUM [Concomitant]
     Indication: COLON CANCER
     Dosage: ALSO RECEIVED ON 17/SEP/2012, 01/OCT/2012, 15/OCT/2012, 29/OCT/2012, 12/NOV/2012, 17/DEC/2012, 02/JA
     Route: 042
     Dates: start: 20130812, end: 20130812
  21. LEUCOVORIN CALCIUM [Concomitant]
     Route: 042
     Dates: start: 20130826, end: 20130826
  22. FLUOROURACIL [Concomitant]
     Indication: COLON CANCER
     Dosage: ALSO RECEIVED ON 17/SEP/2012, 01/OCT/2012, 15/OCT/2012, 29/OCT/2012, 12/NOV/2012, 17/DEC/2012, 02/JA
     Route: 042
     Dates: start: 20130812, end: 20130812
  23. FLUOROURACIL [Concomitant]
     Route: 042
     Dates: start: 20130826, end: 20130826
  24. FLUOROURACIL [Concomitant]
     Route: 042
     Dates: start: 20130812, end: 20130812
  25. FLUOROURACIL [Concomitant]
     Route: 042
     Dates: start: 20130826, end: 20130826
  26. FLUOROURACIL [Concomitant]
     Route: 042
  27. FLUOROURACIL [Concomitant]
     Route: 042
  28. OXALIPLATIN [Concomitant]
     Dosage: ALSO RECEIVED ON 17/SEP/2012, 01/OCT/2012, 15/OCT/2012, 29/OCT/2012, 12/NOV/2012, 17/DEC/2012, 02/JA
     Route: 041
     Dates: start: 2012
  29. CALCIUM GLUCONATE [Concomitant]
     Dosage: ALSO RECEIVED ON 17/SEP/2012, 01/OCT/2012, 15/OCT/2012, 29/OCT/2012, 12/NOV/2012, 17/DEC/2012, 02/JA
     Route: 065
     Dates: start: 2012
  30. MAGNESIUM SULFATE [Concomitant]
     Dosage: ALSO RECEIVED ON 17/SEP/2012, 01/OCT/2012, 15/OCT/2012, 29/OCT/2012, 12/NOV/2012, 17/DEC/2012, 02/JA
     Route: 065
  31. SODIUM CHLORIDE [Concomitant]
     Route: 065
  32. DEXTROSE [Concomitant]
     Dosage: 5 PERCENT IN WATER
     Route: 065

REACTIONS (5)
  - Malignant ascites [Unknown]
  - Upper respiratory tract infection [Unknown]
  - Haemoglobin decreased [Unknown]
  - Haematocrit decreased [Unknown]
  - Decreased appetite [Unknown]
